FAERS Safety Report 6973563-X (Version None)
Quarter: 2010Q3

REPORT INFORMATION
  Report Type: 
  Country: None (occurrence: None)
  Receive Date: 20100907
  Receipt Date: 20100824
  Transmission Date: 20110219
  Serious: Yes (Hospitalization)
  Sender: FDA-Public Use
  Company Number: AUR-APL-2010-02110

PATIENT
  Age: 81 Year
  Sex: Male

DRUGS (14)
  1. SIMVASTATIN [Suspect]
     Dosage: 40MG, ORAL
     Route: 048
     Dates: start: 20100806, end: 20100809
  2. ADALAT 300MG [Concomitant]
  3. ASPIRIN [Concomitant]
  4. ATENOLOL [Concomitant]
  5. CANDESARTAN 8MG [Concomitant]
  6. CIMETIDINE [Concomitant]
  7. CLOPIDOGREL [Concomitant]
  8. FUROSEMIDE [Concomitant]
  9. GLIPIZIDE [Concomitant]
  10. HYDROXOCOBALAMIN [Concomitant]
  11. MULTI-VITAMIN [Concomitant]
  12. PARACETAMOL 1G [Concomitant]
  13. QUININE SULPHATE 200MG [Concomitant]
  14. RANITIDINE 300MG [Concomitant]

REACTIONS (5)
  - ACUTE MYOCARDIAL INFARCTION [None]
  - ALANINE AMINOTRANSFERASE INCREASED [None]
  - BLOOD ALKALINE PHOSPHATASE INCREASED [None]
  - DECREASED APPETITE [None]
  - NAUSEA [None]
